FAERS Safety Report 4688248-2 (Version None)
Quarter: 2005Q2

REPORT INFORMATION
  Report Type: 
  Country: None (occurrence: None)
  Receive Date: 20050609
  Receipt Date: 20050524
  Transmission Date: 20051028
  Serious: Yes (Hospitalization, Other)
  Sender: FDA-Public Use
  Company Number: 2005000780

PATIENT
  Age: 53 Year
  Sex: Male
  Weight: 92.1 kg

DRUGS (5)
  1. ERLOTINIB HCL (TABLET) [Suspect]
     Indication: COLON CANCER
     Dosage: 150 MG, ORAL
     Route: 048
     Dates: start: 20050224, end: 20050317
  2. BEVACIZUMAB (INJECTION FOR INFUSION) [Suspect]
     Indication: COLON CANCER
     Dosage: 493 MG, INTRAVENOUS
     Route: 042
     Dates: start: 20050224, end: 20050317
  3. FLUOROURACIL [Suspect]
     Indication: COLON CANCER
     Dosage: 884 MG, INTRAVENOUS
     Route: 042
     Dates: start: 20050224, end: 20050317
  4. OXALIPLATIN (OXALIPLATIN) (INJECTION FOR INFUSION) [Suspect]
     Indication: COLON CANCER
     Dosage: 188 MG, INTRAVENOUS
     Route: 042
     Dates: start: 20050224, end: 20050317
  5. LEUCOVORIN CALCIUM [Suspect]
     Indication: COLON CANCER
     Dosage: 884 MG, INTRAVENOUS
     Route: 042
     Dates: start: 20050224, end: 20050317

REACTIONS (7)
  - ABDOMINAL PAIN [None]
  - DEHYDRATION [None]
  - DIARRHOEA [None]
  - METABOLIC DISORDER [None]
  - ORAL INTAKE REDUCED [None]
  - PLEURAL EFFUSION [None]
  - TACHYCARDIA [None]
